FAERS Safety Report 21209963 (Version 1)
Quarter: 2022Q3

REPORT INFORMATION
  Report Type: Spontaneous
  Country: US (occurrence: US)
  Receive Date: 20220813
  Receipt Date: 20220813
  Transmission Date: 20221026
  Serious: No
  Sender: FDA-Public Use
  Company Number: US-SANOFI-01221810

PATIENT
  Sex: Male

DRUGS (3)
  1. DUPIXENT [Suspect]
     Active Substance: DUPILUMAB
     Indication: Dermatitis atopic
     Dosage: 400MG; 1X
     Dates: start: 20220706, end: 20220706
  2. SILVADENE [Concomitant]
     Active Substance: SILVER SULFADIAZINE
  3. PHENTERMINE [Concomitant]
     Active Substance: PHENTERMINE

REACTIONS (2)
  - Pigmentation disorder [Not Recovered/Not Resolved]
  - Pruritus [Recovering/Resolving]
